FAERS Safety Report 25958221 (Version 1)
Quarter: 2025Q4

REPORT INFORMATION
  Report Type: Spontaneous
  Country: US (occurrence: None)
  Receive Date: 20251023
  Receipt Date: 20251023
  Transmission Date: 20260117
  Serious: No
  Sender: FDA-CTU
  Company Number: None

PATIENT
  Sex: Female

DRUGS (1)
  1. KISQALI [Suspect]
     Active Substance: RIBOCICLIB SUCCINATE
     Indication: Breast cancer female
     Dosage: 400 MG ORAL??SEE EVENT
     Route: 048
     Dates: start: 20250702

REACTIONS (3)
  - White blood cell count decreased [None]
  - Neutropenia [None]
  - Hepatic enzyme increased [None]
